FAERS Safety Report 9402678 (Version 1)
Quarter: 2013Q3

REPORT INFORMATION
  Report Type: Spontaneous
  Country: GB (occurrence: GB)
  Receive Date: 20130716
  Receipt Date: 20130716
  Transmission Date: 20140515
  Serious: Yes (Other)
  Sender: FDA-Public Use
  Company Number: GB-TEVA-417240ISR

PATIENT
  Age: 66 Year
  Sex: Female
  Weight: 79 kg

DRUGS (3)
  1. ALENDRONIC ACID [Suspect]
     Route: 048
     Dates: start: 20030201, end: 20130621
  2. OMEPRAZOLE [Concomitant]
  3. PREDNISOLONE [Concomitant]
     Indication: MYALGIA
     Dosage: 5 MILLIGRAM DAILY; 2.5-5MG DAILY

REACTIONS (3)
  - Femur fracture [Recovering/Resolving]
  - Arthralgia [Unknown]
  - Fall [Unknown]
